FAERS Safety Report 4958185-4 (Version None)
Quarter: 2006Q1

REPORT INFORMATION
  Report Type: 
  Country: None (occurrence: None)
  Receive Date: 20060330
  Receipt Date: 20060322
  Transmission Date: 20060701
  Serious: Yes (Hospitalization)
  Sender: FDA-Public Use
  Company Number: US-ROCHE-441689

PATIENT
  Age: 45 Year
  Sex: Male

DRUGS (6)
  1. PEGASYS [Suspect]
     Dosage: ROUTE REPORTED AS INJECTABLE.
     Route: 050
     Dates: start: 20051015, end: 20060228
  2. RIBAVIRIN [Suspect]
     Route: 048
     Dates: start: 20051015
  3. RIBAVIRIN [Suspect]
     Route: 048
     Dates: end: 20060228
  4. SULFASALAZINE [Concomitant]
     Indication: COLITIS
  5. VITAMIN NOS [Concomitant]
  6. MILK THISTLE [Concomitant]

REACTIONS (8)
  - ASTHENIA [None]
  - CARBON DIOXIDE INCREASED [None]
  - HAEMATOCRIT DECREASED [None]
  - HAEMOGLOBIN DECREASED [None]
  - LOSS OF CONSCIOUSNESS [None]
  - RED BLOOD CELL COUNT DECREASED [None]
  - SINUSITIS [None]
  - WHITE BLOOD CELL COUNT DECREASED [None]
